FAERS Safety Report 7192130-9 (Version None)
Quarter: 2010Q4

REPORT INFORMATION
  Report Type: 
  Country: None (occurrence: None)
  Receive Date: 20101223
  Receipt Date: 20100129
  Transmission Date: 20110411
  Serious: No
  Sender: FDA-Public Use
  Company Number: US-TYCO HEALTHCARE/MALLINCKRODT-T201000576

PATIENT

DRUGS (4)
  1. HYDROMORPHONE HCL [Suspect]
     Indication: PAIN
     Dosage: UNK
     Route: 048
  2. MORPHINE [Concomitant]
     Indication: PAIN
     Dosage: UNK
  3. OXYCODONE [Concomitant]
     Indication: PAIN
     Dosage: 15 MG, PRN
     Route: 048
  4. LISINOPRIL [Concomitant]
     Indication: HYPERTENSION
     Dosage: 20 MG Q 12 HOURS
     Route: 048

REACTIONS (2)
  - DRUG INEFFECTIVE [None]
  - INTENTIONAL DRUG MISUSE [None]
